FAERS Safety Report 6037217-9 (Version None)
Quarter: 2009Q1

REPORT INFORMATION
  Report Type: 
  Country: None (occurrence: None)
  Receive Date: 20090114
  Receipt Date: 20090107
  Transmission Date: 20090719
  Serious: Yes (Hospitalization)
  Sender: FDA-Public Use
  Company Number: US-BIOGENIDEC-2009BI000638

PATIENT
  Age: 52 Year
  Sex: Female

DRUGS (1)
  1. AVONEX [Suspect]
     Indication: MULTIPLE SCLEROSIS
     Route: 030
     Dates: start: 20010703

REACTIONS (6)
  - ABDOMINAL PAIN UPPER [None]
  - DYSPEPSIA [None]
  - GALLBLADDER OPERATION [None]
  - INCISIONAL HERNIA [None]
  - PANCREATITIS [None]
  - PROCEDURAL PAIN [None]
